FAERS Safety Report 20170761 (Version 1)
Quarter: 2021Q4

REPORT INFORMATION
  Report Type: Spontaneous
  Country: US (occurrence: US)
  Receive Date: 20211210
  Receipt Date: 20211210
  Transmission Date: 20220303
  Serious: Yes (Other)
  Sender: FDA-Public Use
  Company Number: US-SA-SAC20211208000928

PATIENT
  Sex: Male

DRUGS (3)
  1. TAXOTERE [Suspect]
     Active Substance: DOCETAXEL
     Dosage: UNK
     Dates: start: 20200303, end: 20200526
  2. LUPRON [Concomitant]
     Active Substance: LEUPROLIDE ACETATE
     Dosage: UNK
     Dates: start: 2008
  3. JEVTANA [Concomitant]
     Active Substance: CABAZITAXEL
     Dosage: UNK
     Dates: start: 20210106, end: 20210915

REACTIONS (3)
  - Hormone-refractory prostate cancer [Unknown]
  - Metastases to bone [Unknown]
  - Disease progression [Unknown]
